FAERS Safety Report 16794344 (Version 1)
Quarter: 2019Q3

REPORT INFORMATION
  Report Type: Spontaneous
  Country: ES (occurrence: ES)
  Receive Date: 20190911
  Receipt Date: 20190911
  Transmission Date: 20191005
  Serious: Yes (Other)
  Sender: FDA-Public Use
  Company Number: ES-ASTRAZENECA-2019SF25313

PATIENT
  Age: 72 Year
  Sex: Male
  Weight: 70 kg

DRUGS (5)
  1. ACETYLSALICYLIC ACID [Concomitant]
     Active Substance: ASPIRIN
     Indication: ACUTE CORONARY SYNDROME
     Dates: start: 2014
  2. ALIPZA [Concomitant]
     Active Substance: PITAVASTATIN
     Indication: ACUTE CORONARY SYNDROME
     Dates: start: 2014
  3. BRILIQUE [Suspect]
     Active Substance: TICAGRELOR
     Indication: ACUTE CORONARY SYNDROME
     Dosage: EVERY 12 HOURS
     Route: 048
     Dates: start: 20140820, end: 20141106
  4. LISINOPRIL. [Concomitant]
     Active Substance: LISINOPRIL
     Indication: ACUTE CORONARY SYNDROME
     Dates: start: 2014
  5. ATENOLOL ALTER [Concomitant]
     Dates: start: 20140830

REACTIONS (2)
  - Hepatitis cholestatic [Recovered/Resolved]
  - Renal failure [Recovered/Resolved]

NARRATIVE: CASE EVENT DATE: 20141017
